FAERS Safety Report 14853132 (Version 1)
Quarter: 2018Q2

REPORT INFORMATION
  Report Type: Spontaneous
  Country: GB (occurrence: GB)
  Receive Date: 20180507
  Receipt Date: 20180507
  Transmission Date: 20180711
  Serious: Yes (Hospitalization, Other)
  Sender: FDA-Public Use
  Company Number: GB-IBIGEN-2018.03962

PATIENT
  Age: 69 Year
  Sex: Female

DRUGS (2)
  1. BENZYLPENICILLIN [Suspect]
     Active Substance: PENICILLIN G
  2. FLUCLOXACILLIN [Concomitant]
     Active Substance: FLUCLOXACILLIN

REACTIONS (4)
  - Unresponsive to stimuli [Recovered/Resolved]
  - Documented hypersensitivity to administered product [Unknown]
  - Anaphylactic reaction [Recovering/Resolving]
  - Pulseless electrical activity [Recovered/Resolved]

NARRATIVE: CASE EVENT DATE: 20170717
